FAERS Safety Report 19426335 (Version 1)
Quarter: 2021Q2

REPORT INFORMATION
  Report Type: Spontaneous
  Country: US (occurrence: US)
  Receive Date: 20210617
  Receipt Date: 20210617
  Transmission Date: 20210717
  Serious: Yes (Hospitalization, Other)
  Sender: FDA-Public Use
  Company Number: US-AUROBINDO-AUR-APL-2021-024835

PATIENT
  Age: 17 Year
  Sex: Female

DRUGS (1)
  1. IBUPROFEN 800MG [Suspect]
     Active Substance: IBUPROFEN
     Indication: PRODUCT USED FOR UNKNOWN INDICATION
     Dosage: 56 MILLIGRAM
     Route: 065

REACTIONS (10)
  - Seizure [Recovered/Resolved]
  - Unresponsive to stimuli [Recovered/Resolved]
  - Sluggishness [Recovered/Resolved]
  - Mental status changes [Recovered/Resolved]
  - Ataxia [Recovered/Resolved]
  - Overdose [Recovered/Resolved]
  - Hypernatraemia [Recovered/Resolved]
  - Acidosis [Recovered/Resolved]
  - Muscle contracture [Recovered/Resolved]
  - Encephalopathy [Recovered/Resolved]
